FAERS Safety Report 21118063 (Version 1)
Quarter: 2022Q3

REPORT INFORMATION
  Report Type: Other
  Country: US (occurrence: None)
  Receive Date: 20220722
  Receipt Date: 20220722
  Transmission Date: 20221027
  Serious: Yes (Other)
  Sender: FDA-Public Use
  Company Number: US-ROCHE-3140233

PATIENT
  Age: 55 Year
  Sex: Male

DRUGS (4)
  1. MYCOPHENOLATE MOFETIL [Suspect]
     Active Substance: MYCOPHENOLATE MOFETIL
     Indication: Mucous membrane pemphigoid
     Route: 065
  2. PREDNISONE [Suspect]
     Active Substance: PREDNISONE
     Indication: Mucous membrane pemphigoid
     Route: 065
  3. CYCLOPHOSPHAMIDE [Concomitant]
     Active Substance: CYCLOPHOSPHAMIDE
     Indication: Mucous membrane pemphigoid
  4. RITUXIMAB [Concomitant]
     Active Substance: RITUXIMAB
     Indication: Mucous membrane pemphigoid
     Route: 065

REACTIONS (4)
  - Mycobacterium kansasii infection [Unknown]
  - Disease progression [Unknown]
  - Dyspnoea [Recovering/Resolving]
  - Drug ineffective [Unknown]
